FAERS Safety Report 24854217 (Version 1)
Quarter: 2025Q1

REPORT INFORMATION
  Report Type: Report from Study
  Country: PK (occurrence: PK)
  Receive Date: 20250117
  Receipt Date: 20250117
  Transmission Date: 20250408
  Serious: Yes (Death)
  Sender: ROCHE
  Company Number: PK-ROCHE-10000183329

PATIENT
  Age: 64 Year
  Sex: Female

DRUGS (1)
  1. HERCEPTIN [Suspect]
     Active Substance: TRASTUZUMAB
     Indication: Breast cancer metastatic
     Dosage: 18 CYCLES WITH INTERVAL OF 3 WEEKLY
     Route: 058
     Dates: start: 20240806

REACTIONS (1)
  - Death [Fatal]

NARRATIVE: CASE EVENT DATE: 20241223
